FAERS Safety Report 4325651-4 (Version None)
Quarter: 2004Q1

REPORT INFORMATION
  Report Type: 
  Country: None (occurrence: None)
  Receive Date: 20040324
  Receipt Date: 20040315
  Transmission Date: 20041129
  Serious: Yes (Death)
  Sender: FDA-Public Use
  Company Number: USA040360815

PATIENT
  Age: 67 Year
  Sex: Female

DRUGS (2)
  1. XIGRIS [Suspect]
     Indication: SEPSIS
     Dosage: 24 UG/KG/HR/75 HOURS OTHER
     Route: 050
     Dates: start: 20040223, end: 20040226
  2. VASOPRESSORS [Concomitant]

REACTIONS (1)
  - MYOCARDIAL INFARCTION [None]
